FAERS Safety Report 9790881 (Version 3)
Quarter: 2014Q1

REPORT INFORMATION
  Report Type: Spontaneous
  Country: FR (occurrence: FR)
  Receive Date: 20131231
  Receipt Date: 20140213
  Transmission Date: 20141002
  Serious: Yes (Hospitalization)
  Sender: FDA-Public Use
  Company Number: FR-BRISTOL-MYERS SQUIBB COMPANY-19936608

PATIENT
  Age: 42 Year
  Sex: Male
  Weight: 80 kg

DRUGS (3)
  1. REYATAZ [Suspect]
     Indication: HIV INFECTION
     Dates: start: 20060506
  2. NORVIR [Suspect]
     Indication: HIV INFECTION
     Dates: start: 20060506
  3. TRUVADA [Suspect]
     Indication: HIV INFECTION
     Dates: start: 20060506

REACTIONS (3)
  - Tendon rupture [Recovered/Resolved]
  - Herpes zoster [Recovered/Resolved]
  - Lipodystrophy acquired [Not Recovered/Not Resolved]
